FAERS Safety Report 6606583-5 (Version None)
Quarter: 2010Q1

REPORT INFORMATION
  Report Type: 
  Country: None (occurrence: None)
  Receive Date: 20100226
  Receipt Date: 20100216
  Transmission Date: 20100710
  Serious: Yes (Hospitalization)
  Sender: FDA-Public Use
  Company Number: JP-PFIZER INC-A205254

PATIENT
  Age: 65 Year
  Sex: Male

DRUGS (3)
  1. VIAGRA [Suspect]
     Route: 048
     Dates: start: 20020101, end: 20020205
  2. CIMETIDINE [Concomitant]
     Route: 048
     Dates: start: 20020205, end: 20020201
  3. ALDIOXA [Concomitant]
     Route: 048
     Dates: start: 20020205, end: 20020201

REACTIONS (1)
  - THROMBOTIC THROMBOCYTOPENIC PURPURA [None]
